FAERS Safety Report 4332691-8 (Version None)
Quarter: 2004Q1

REPORT INFORMATION
  Report Type: 
  Country: None (occurrence: None)
  Receive Date: 20040330
  Receipt Date: 20040302
  Transmission Date: 20041129
  Serious: Yes (Hospitalization)
  Sender: FDA-Public Use
  Company Number: 2003CG01585

PATIENT
  Age: 47 Year
  Sex: Male

DRUGS (5)
  1. ESOMEPRAZOLE [Suspect]
     Indication: ABDOMINAL PAIN UPPER
     Dosage: 40 MG BID PO
     Route: 048
     Dates: start: 20031015, end: 20031022
  2. ESOMEPRAZOLE [Suspect]
     Indication: ABDOMINAL PAIN UPPER
     Dosage: 40 MG QD PO
     Route: 048
     Dates: start: 20031023, end: 20031024
  3. ESOMEPRAZOLE [Suspect]
     Indication: ABDOMINAL PAIN UPPER
     Dosage: 40 MG QD PO
     Route: 048
     Dates: start: 20031027, end: 20031105
  4. MAALOX [Concomitant]
  5. STRESAM [Concomitant]

REACTIONS (2)
  - COLITIS ULCERATIVE [None]
  - HEPATOMEGALY [None]
